FAERS Safety Report 8058244-6 (Version None)
Quarter: 2012Q1

REPORT INFORMATION
  Report Type: 
  Country: None (occurrence: None)
  Receive Date: 20120111
  Receipt Date: 20111227
  Transmission Date: 20120608
  Serious: Yes (Death)
  Sender: FDA-Public Use
  Company Number: 2011P1014204

PATIENT
  Age: 58 Year
  Sex: Male
  Weight: 104.3273 kg

DRUGS (9)
  1. FENTANYL [Suspect]
     Indication: INTERVERTEBRAL DISC DEGENERATION
     Dosage: Q3D
     Dates: start: 20110601, end: 20110101
  2. FENTANYL [Suspect]
     Indication: ARTHRITIS
     Dosage: Q3D
     Dates: start: 20110601, end: 20110101
  3. FENTANYL [Suspect]
     Indication: SCIATICA
     Dosage: Q3D
     Dates: start: 20110601, end: 20110101
  4. MIRTAZAPINE [Concomitant]
  5. VICODIN [Concomitant]
  6. CITALOPRAM HYDROBROMIDE [Concomitant]
  7. FENTANYL [Suspect]
     Indication: BONE CYST
     Dosage: Q3D
     Dates: start: 20110101, end: 20110101
  8. FENTANYL [Suspect]
     Indication: BACK PAIN
     Dosage: Q3D
     Dates: start: 20110101, end: 20110101
  9. FENTANYL [Suspect]
     Indication: FIBROMYALGIA
     Dosage: Q3D
     Dates: start: 20110101, end: 20110101

REACTIONS (2)
  - INCORRECT DOSE ADMINISTERED [None]
  - ACCIDENTAL POISONING [None]
